FAERS Safety Report 7582018-3 (Version None)
Quarter: 2011Q2

REPORT INFORMATION
  Report Type: 
  Country: None (occurrence: None)
  Receive Date: 20110630
  Receipt Date: 20110623
  Transmission Date: 20111010
  Serious: No
  Sender: FDA-Public Use
  Company Number: US-BIOGENIDEC-2011BI002112

PATIENT
  Sex: Female

DRUGS (2)
  1. TYSABRI [Suspect]
     Route: 042
     Dates: start: 20110404
  2. TYSABRI [Suspect]
     Indication: MULTIPLE SCLEROSIS
     Route: 042
     Dates: start: 20090415, end: 20110307

REACTIONS (9)
  - FATIGUE [None]
  - APHASIA [None]
  - RESPIRATORY DISORDER [None]
  - PYREXIA [None]
  - PNEUMONIA [None]
  - COGNITIVE DISORDER [None]
  - URINARY TRACT INFECTION [None]
  - AMNESIA [None]
  - UPPER RESPIRATORY TRACT INFECTION [None]
